FAERS Safety Report 24138845 (Version 1)
Quarter: 2024Q3

REPORT INFORMATION
  Report Type: Spontaneous
  Country: UY (occurrence: UY)
  Receive Date: 20240725
  Receipt Date: 20240725
  Transmission Date: 20241017
  Serious: Yes (Other)
  Sender: BRISTOL MYERS SQUIBB
  Company Number: UY-BRISTOL-MYERS SQUIBB COMPANY-2024-115836

PATIENT
  Age: 70 Year
  Sex: Female

DRUGS (1)
  1. OPDIVO [Suspect]
     Active Substance: NIVOLUMAB
     Indication: Renal cancer
     Route: 042
     Dates: start: 20231206, end: 2024

REACTIONS (1)
  - Hyperaldosteronism [Unknown]

NARRATIVE: CASE EVENT DATE: 20240101
